FAERS Safety Report 5635485-6 (Version None)
Quarter: 2008Q1

REPORT INFORMATION
  Report Type: 
  Country: None (occurrence: None)
  Receive Date: 20080222
  Receipt Date: 20080213
  Transmission Date: 20080703
  Serious: Yes (Other)
  Sender: FDA-Public Use
  Company Number: US-PFIZER INC-2008014235

PATIENT
  Sex: Male
  Weight: 69.9 kg

DRUGS (4)
  1. BEXTRA [Suspect]
  2. OMEPRAZOLE [Concomitant]
  3. DETROL LA [Concomitant]
  4. LUPRON [Concomitant]

REACTIONS (1)
  - STEVENS-JOHNSON SYNDROME [None]
